FAERS Safety Report 24154598 (Version 2)
Quarter: 2024Q4

REPORT INFORMATION
  Report Type: Spontaneous
  Country: NO (occurrence: NO)
  Receive Date: 20240731
  Receipt Date: 20241209
  Transmission Date: 20250114
  Serious: Yes (Life-Threatening, Hospitalization, Other)
  Sender: CHEPLAPHARM
  Company Number: None

PATIENT
  Age: 38 Year
  Sex: Female

DRUGS (7)
  1. OLANZAPINE [Suspect]
     Active Substance: OLANZAPINE
     Indication: Psychotic disorder
     Route: 048
     Dates: start: 2022
  2. QUETIAPINE FUMARATE [Suspect]
     Active Substance: QUETIAPINE FUMARATE
     Indication: Psychotic disorder
     Route: 048
     Dates: start: 2023, end: 20240331
  3. ZELDOX [Suspect]
     Active Substance: ZIPRASIDONE
     Indication: Psychotic disorder
     Route: 048
     Dates: start: 2022, end: 2022
  4. ABILIFY MAINTENA [Suspect]
     Active Substance: ARIPIPRAZOLE
     Indication: Psychotic disorder
     Dosage: DEPOT INJECTION SOLUTION,?SUSPENSION
     Route: 030
     Dates: start: 2021
  5. ABILIFY MAINTENA [Suspect]
     Active Substance: ARIPIPRAZOLE
     Indication: Mania
     Dosage: DEPOT INJECTION SOLUTION,?SUSPENSION
     Route: 030
     Dates: start: 2021
  6. OMEGA-3 ACIDS [Concomitant]
     Active Substance: OMEGA-3 FATTY ACIDS
     Indication: Nutritional supplementation
  7. Attentin [Concomitant]
     Indication: Attention deficit hyperactivity disorder
     Dates: start: 2021

REACTIONS (22)
  - Weight increased [Recovered/Resolved]
  - Arthralgia [Recovered/Resolved]
  - Neck pain [Recovered/Resolved]
  - Self esteem decreased [Recovered/Resolved]
  - Back disorder [Recovered/Resolved]
  - Vision blurred [Recovered/Resolved]
  - Fluid retention [Recovered/Resolved]
  - Joint swelling [Recovered/Resolved with Sequelae]
  - Joint stiffness [Recovered/Resolved with Sequelae]
  - Myalgia [Recovered/Resolved with Sequelae]
  - Face injury [Recovered/Resolved with Sequelae]
  - Amnesia [Recovered/Resolved with Sequelae]
  - Apathy [Recovered/Resolved with Sequelae]
  - Dysphonia [Recovered/Resolved with Sequelae]
  - Feeling abnormal [Recovered/Resolved with Sequelae]
  - Peripheral swelling [Recovered/Resolved with Sequelae]
  - Musculoskeletal stiffness [Recovered/Resolved with Sequelae]
  - Gastrointestinal disorder [Unknown]
  - Pelvic pain [Unknown]
  - Diabetes mellitus [Unknown]
  - Suicide attempt [Unknown]
  - Coma [Unknown]
